FAERS Safety Report 7653124-X (Version None)
Quarter: 2011Q3

REPORT INFORMATION
  Report Type: 
  Country: None (occurrence: None)
  Receive Date: 20110728
  Receipt Date: 20110715
  Transmission Date: 20111222
  Serious: Yes (Other)
  Sender: FDA-Public Use
  Company Number: EU-2011-10128

PATIENT
  Sex: Male
  Weight: 61 kg

DRUGS (15)
  1. SAMSCA [Suspect]
     Indication: INAPPROPRIATE ANTIDIURETIC HORMONE SECRETION
     Dosage: 7.5 MG MILLIGRAM(S), DAILY DOSE
     Dates: start: 20110709, end: 20110710
  2. SAMSCA [Suspect]
     Indication: HYPONATRAEMIA
     Dosage: 7.5 MG MILLIGRAM(S), DAILY DOSE
     Dates: start: 20110709, end: 20110710
  3. OXASCAND (OXAZEPAM) [Concomitant]
  4. LACTULOSE [Concomitant]
  5. AMITRIPTYLINE HCL [Concomitant]
  6. CILAXORAL (SODIUM PICOSULFATE) [Concomitant]
  7. SALINE (SALINE) [Concomitant]
  8. OMEPRAZOLE [Concomitant]
  9. EMOVAT (CLOBETASONE BUTYRATE) [Concomitant]
  10. FOLACIN (FOLIC ACID) [Concomitant]
  11. BEHEPAN (CYANOCOBALAMIN) [Concomitant]
  12. FELODIPIN (FELODIPINE) [Concomitant]
  13. VALACYCLOVIR [Concomitant]
  14. TRAMADOL HCL [Concomitant]
  15. IMOVANE (ZOPICLONE) [Concomitant]

REACTIONS (3)
  - FLUID INTAKE RESTRICTION [None]
  - BLOOD CREATININE INCREASED [None]
  - WRONG TECHNIQUE IN DRUG USAGE PROCESS [None]
